FAERS Safety Report 4506395-2 (Version None)
Quarter: 2004Q4

REPORT INFORMATION
  Report Type: 
  Country: None (occurrence: None)
  Receive Date: 20041025
  Receipt Date: 20031229
  Transmission Date: 20050328
  Serious: Yes (Hospitalization)
  Sender: FDA-Public Use
  Company Number: US-JNJFOC-20040100125

PATIENT
  Age: 15 Year
  Sex: Female
  Weight: 53.5244 kg

DRUGS (2)
  1. REMICADE [Suspect]
     Indication: CROHN'S DISEASE
     Dosage: 300 MG
     Dates: start: 20030227
  2. REMICADE [Suspect]
     Indication: CROHN'S DISEASE
     Dosage: 300 MG
     Dates: start: 20031003

REACTIONS (1)
  - OSTEOMYELITIS ACUTE [None]
